FAERS Safety Report 7880080-1 (Version None)
Quarter: 2011Q4

REPORT INFORMATION
  Report Type: 
  Country: None (occurrence: None)
  Receive Date: 20111101
  Receipt Date: 20111021
  Transmission Date: 20120403
  Serious: Yes (Hospitalization)
  Sender: FDA-Public Use
  Company Number: US-BAYER-2011-033023

PATIENT
  Age: 32 Year
  Sex: Female
  Weight: 97.506 kg

DRUGS (5)
  1. FISH OIL [Concomitant]
  2. IRON [Concomitant]
  3. YAZ [Suspect]
     Dosage: UNK
     Dates: start: 20080101, end: 20090101
  4. SINGULAIR [Concomitant]
  5. PROTONIX [Concomitant]

REACTIONS (3)
  - INJURY [None]
  - DEEP VEIN THROMBOSIS [None]
  - PAIN [None]
